FAERS Safety Report 9017342 (Version 1)
Quarter: 2013Q1

REPORT INFORMATION
  Report Type: Spontaneous
  Country: US (occurrence: US)
  Receive Date: 20130117
  Receipt Date: 20130117
  Transmission Date: 20140127
  Serious: No
  Sender: FDA-Public Use
  Company Number: US-B.I. PHARMACEUTICALS,INC./RIDGEFIELD-2011-BP-26298BP

PATIENT
  Sex: Female

DRUGS (11)
  1. SPIRIVA HANDIHALER [Suspect]
     Indication: CHRONIC OBSTRUCTIVE PULMONARY DISEASE
     Dosage: 18 MCG
     Route: 055
     Dates: start: 2006
  2. COMBIVENT [Suspect]
     Indication: CHRONIC OBSTRUCTIVE PULMONARY DISEASE
     Route: 055
     Dates: start: 2012
  3. ALBUTEROL INHALER [Concomitant]
     Indication: CHRONIC OBSTRUCTIVE PULMONARY DISEASE
     Dosage: 2 PUF
     Route: 055
  4. FLOVENT [Concomitant]
     Indication: CHRONIC OBSTRUCTIVE PULMONARY DISEASE
     Route: 055
  5. HCTZ [Concomitant]
     Indication: FLUID RETENTION
     Dosage: 12.5 MG
     Route: 048
  6. COUGH MEDICINE W/ HYDROCODONE [Concomitant]
     Indication: COUGH
     Route: 048
  7. VITAMIN B12 [Concomitant]
     Indication: SUPPLEMENTATION THERAPY
  8. VITAMIN E [Concomitant]
     Indication: SUPPLEMENTATION THERAPY
     Route: 048
  9. VITAMIN D [Concomitant]
     Indication: SUPPLEMENTATION THERAPY
     Route: 048
  10. DORZOLAMIDE EYE DROPS [Concomitant]
  11. BIMATOPROST EYE DROPS [Concomitant]

REACTIONS (6)
  - Glaucoma [Not Recovered/Not Resolved]
  - Urinary retention [Not Recovered/Not Resolved]
  - Cataract [Recovered/Resolved]
  - Drug ineffective [Recovered/Resolved]
  - Abnormal loss of weight [Not Recovered/Not Resolved]
  - Road traffic accident [Recovered/Resolved]
